FAERS Safety Report 8398415-2 (Version None)
Quarter: 2012Q2

REPORT INFORMATION
  Report Type: 
  Country: None (occurrence: None)
  Receive Date: 20120531
  Receipt Date: 20120522
  Transmission Date: 20120825
  Serious: Yes (Hospitalization)
  Sender: FDA-Public Use
  Company Number: US-BAYER-2012-021882

PATIENT
  Age: 24 Year
  Sex: Female
  Weight: 118 kg

DRUGS (11)
  1. MULTI-VITAMIN [Concomitant]
     Dosage: UNK UNK, QOD
  2. FISH OIL [Concomitant]
     Dosage: UNK UNK, TIW
     Dates: start: 20110101, end: 20110801
  3. DROSPIRENONE AND ETHINYL ESTRADIOL [Suspect]
     Indication: ACNE
     Dosage: UNK
     Dates: start: 20110301, end: 20110828
  4. DROSPIRENONE AND ETHINYL ESTRADIOL [Suspect]
     Indication: CONTRACEPTION
  5. CYTOMEL [Concomitant]
     Dosage: 5 ?G, BID
  6. SPIRONOLACTONE [Concomitant]
     Dosage: UNK
     Dates: start: 20090101
  7. LEVOTHYROXINE SODIUM [Concomitant]
     Indication: THYROID DISORDER
     Dosage: 175 ?G, QD
  8. DROSPIRENONE AND ETHINYL ESTRADIOL [Suspect]
     Indication: HORMONE LEVEL ABNORMAL
  9. DEXAMETHASONE [Concomitant]
     Indication: ADRENAL SUPPRESSION
     Dosage: 0.5 MG, UNK
  10. METFORMIN HCL [Concomitant]
     Indication: POLYCYSTIC OVARIES
     Dosage: 500 MG, QD
  11. PREDNISONE TAB [Concomitant]
     Dosage: 20 MG, UNK

REACTIONS (4)
  - CONVULSION [None]
  - CEREBROVASCULAR ACCIDENT [None]
  - PAIN [None]
  - INTRACRANIAL VENOUS SINUS THROMBOSIS [None]
